FAERS Safety Report 4648232-1 (Version None)
Quarter: 2005Q2

REPORT INFORMATION
  Report Type: 
  Country: None (occurrence: None)
  Receive Date: 20050331
  Receipt Date: 20050210
  Transmission Date: 20051028
  Serious: No
  Sender: FDA-Public Use
  Company Number: 05P-163-0290175-00

PATIENT
  Age: 75 Year
  Sex: Female
  Weight: 49.8957 kg

DRUGS (12)
  1. HUMIRA [Suspect]
     Indication: RHEUMATOID ARTHRITIS
     Dosage: 40 MG, SUBCUTANEOUS
     Route: 058
     Dates: start: 20040701
  2. CELECOXIB [Concomitant]
  3. CADUET [Concomitant]
  4. ASULFADINE [Concomitant]
  5. TOPEROL [Concomitant]
  6. GABAPENTIN [Concomitant]
  7. RALOXIFENE HCL [Concomitant]
  8. OMEPRAZOLE [Concomitant]
  9. MULTI-VITAMINS [Concomitant]
  10. PREDNISONE TAB [Concomitant]
  11. ASCORBIC ACID [Concomitant]
  12. TOCOPHEROL CONCENTRATE CAP [Concomitant]

REACTIONS (1)
  - INFLUENZA [None]
